FAERS Safety Report 8890090 (Version 1)
Quarter: 2012Q4

REPORT INFORMATION
  Report Type: Spontaneous
  Country: US (occurrence: None)
  Receive Date: 20121105
  Receipt Date: 20121105
  Transmission Date: 20130627
  Serious: No
  Sender: FDA-Public Use
  Company Number: None

PATIENT
  Age: 55 Year
  Sex: Female
  Weight: 78.47 kg

DRUGS (3)
  1. PRAVASTATIN SODIUM [Suspect]
     Indication: HIGH CHOLESTEROL
     Dosage: 1 Tablet Every day po
     Route: 048
     Dates: start: 20111104, end: 20120315
  2. ATORVASTATIN 20MG [Suspect]
     Indication: HIGH CHOLESTEROL
     Dosage: 1 Tablet Every day po
     Route: 048
     Dates: start: 20120417, end: 20120430
  3. LIPITOR [Concomitant]

REACTIONS (5)
  - Myalgia [None]
  - Muscle spasms [None]
  - Pain [None]
  - Asthenia [None]
  - Muscular weakness [None]
